FAERS Safety Report 7588048-X (Version None)
Quarter: 2011Q3

REPORT INFORMATION
  Report Type: 
  Country: None (occurrence: None)
  Receive Date: 20110705
  Receipt Date: 20110628
  Transmission Date: 20111222
  Serious: No
  Sender: FDA-Public Use
  Company Number: US-PFIZER INC-2011145273

PATIENT
  Age: 52 Year
  Sex: Female

DRUGS (2)
  1. PREMARIN [Suspect]
     Indication: VULVOVAGINAL BURNING SENSATION
     Dosage: 1 G, UNK
  2. PREMARIN [Suspect]
     Indication: VULVOVAGINAL DISCOMFORT

REACTIONS (2)
  - VULVOVAGINAL BURNING SENSATION [None]
  - CONDITION AGGRAVATED [None]
